FAERS Safety Report 8856188 (Version 1)
Quarter: 2012Q4

REPORT INFORMATION
  Report Type: Spontaneous
  Country: US (occurrence: None)
  Receive Date: 20121019
  Receipt Date: 20121019
  Transmission Date: 20130627
  Serious: Yes (Other)
  Sender: FDA-Public Use
  Company Number: 2012AP003379

PATIENT
  Sex: Male

DRUGS (4)
  1. MYCOPHENOLATE [Suspect]
     Indication: IMMUNOSUPPRESSANT DRUG THERAPY
  2. HYDROXYCHLOROQUINE [Suspect]
     Indication: IMMUNOSUPPRESSANT DRUG THERAPY
  3. ETANERCEPT [Suspect]
     Indication: SYSTEMIC SCLEROSIS
  4. METHOTREXATE [Suspect]
     Indication: IMMUNOSUPPRESSANT DRUG THERAPY

REACTIONS (1)
  - Basal cell carcinoma [None]
